FAERS Safety Report 19581406 (Version 1)
Quarter: 2021Q3

REPORT INFORMATION
  Report Type: Spontaneous
  Country: GB (occurrence: GB)
  Receive Date: 20210720
  Receipt Date: 20210720
  Transmission Date: 20211014
  Serious: Yes (Death, Life-Threatening, Hospitalization, Other)
  Sender: FDA-Public Use
  Company Number: GB-AUROBINDO-AUR-APL-2021-029792

PATIENT
  Age: 30 Year
  Sex: Female

DRUGS (1)
  1. VENLAFAXINE [Suspect]
     Active Substance: VENLAFAXINE HYDROCHLORIDE
     Indication: ANTIDEPRESSANT THERAPY
     Dosage: UNK
     Route: 065
     Dates: start: 2013

REACTIONS (3)
  - Alcohol interaction [Fatal]
  - Alcohol poisoning [Fatal]
  - Respiratory depression [Fatal]

NARRATIVE: CASE EVENT DATE: 2013
